FAERS Safety Report 13295586 (Version 1)
Quarter: 2017Q1

REPORT INFORMATION
  Report Type: Spontaneous
  Country: US (occurrence: US)
  Receive Date: 20170303
  Receipt Date: 20170303
  Transmission Date: 20170428
  Serious: No
  Sender: FDA-Public Use
  Company Number: US-INCYTE CORPORATION-2017IN001287

PATIENT
  Sex: Male

DRUGS (1)
  1. JAKAFI [Suspect]
     Active Substance: RUXOLITINIB
     Indication: MYELOFIBROSIS
     Dosage: 5 MG, Q 12 HOURS
     Route: 048
     Dates: start: 20151223

REACTIONS (3)
  - Abdominal discomfort [Unknown]
  - Splenomegaly [Unknown]
  - Ingrowing nail [Unknown]
